FAERS Safety Report 5055854-5 (Version None)
Quarter: 2006Q3

REPORT INFORMATION
  Report Type: 
  Country: None (occurrence: None)
  Receive Date: 20060718
  Receipt Date: 20060718
  Transmission Date: 20061208
  Serious: Yes (Other)
  Sender: FDA-Public Use
  Company Number: None

PATIENT
  Sex: Female
  Weight: 93.441 kg

DRUGS (2)
  1. ZOMETA [Suspect]
     Indication: BREAST CANCER
     Dosage: 4 MG Q MONTH IV DRIP
     Route: 041
     Dates: start: 20041101, end: 20060616
  2. ZOMETA [Suspect]
     Indication: METASTASES TO BONE
     Dosage: 4 MG Q MONTH IV DRIP
     Route: 041
     Dates: start: 20041101, end: 20060616

REACTIONS (4)
  - OSTEONECROSIS [None]
  - PAIN IN JAW [None]
  - TOOTH ABSCESS [None]
  - TOOTH EXTRACTION [None]
